FAERS Safety Report 15198396 (Version 2)
Quarter: 2018Q3

REPORT INFORMATION
  Report Type: Spontaneous
  Country: BR (occurrence: BR)
  Receive Date: 20180725
  Receipt Date: 20180911
  Transmission Date: 20181010
  Serious: Yes (Other)
  Sender: FDA-Public Use
  Company Number: BR-009507513-1807BRA009947

PATIENT
  Sex: Female

DRUGS (1)
  1. IMPLANON [Suspect]
     Active Substance: ETONOGESTREL
     Indication: CONTRACEPTION
     Dosage: IMPLANT
     Route: 059
     Dates: end: 2017

REACTIONS (1)
  - Cushing^s syndrome [Recovered/Resolved]

NARRATIVE: CASE EVENT DATE: 2017
